FAERS Safety Report 8481036-0 (Version None)
Quarter: 2012Q3

REPORT INFORMATION
  Report Type: 
  Country: None (occurrence: None)
  Receive Date: 20120702
  Receipt Date: 20120622
  Transmission Date: 20120928
  Serious: Yes (Other)
  Sender: FDA-Public Use
  Company Number: PHFR2012GB003659

PATIENT
  Age: 76 Year
  Sex: Female

DRUGS (1)
  1. ESTRADERM [Suspect]
     Indication: HYSTERECTOMY
     Dosage: 50 UKN, UNK
     Route: 062

REACTIONS (3)
  - SUICIDAL IDEATION [None]
  - HYPERHIDROSIS [None]
  - FLUSHING [None]
